FAERS Safety Report 11343363 (Version 3)
Quarter: 2015Q3

REPORT INFORMATION
  Report Type: Report from Study
  Country: JP (occurrence: JP)
  Receive Date: 20150806
  Receipt Date: 20150911
  Transmission Date: 20151125
  Serious: Yes (Hospitalization, Other)
  Sender: FDA-Public Use
  Company Number: JP-TAKEDA-2015TJP014259

PATIENT
  Age: 67 Year
  Sex: Male
  Weight: 77 kg

DRUGS (10)
  1. ALOGLIPTIN [Suspect]
     Active Substance: ALOGLIPTIN
     Dosage: 25 MG, QD
     Route: 048
     Dates: start: 20140813
  2. ALOGLIPTIN [Suspect]
     Active Substance: ALOGLIPTIN
     Indication: TYPE 2 DIABETES MELLITUS
     Dosage: 25 MG, QD
     Route: 048
     Dates: start: 20120731, end: 20140325
  3. MEVAN                              /00880402/ [Concomitant]
     Dosage: UNK
     Route: 048
  4. OLMETEC [Concomitant]
     Active Substance: OLMESARTAN MEDOXOMIL
     Indication: HYPERTENSION
     Dosage: 20 MG, QD
     Route: 048
     Dates: start: 20080710, end: 20140415
  5. PRAVASTATIN SODIUM. [Concomitant]
     Active Substance: PRAVASTATIN SODIUM
     Indication: DYSLIPIDAEMIA
     Dosage: 10 MG, QD
     Route: 048
     Dates: start: 20130416, end: 20140326
  6. GRANISETRON                        /01178102/ [Concomitant]
     Active Substance: GRANISETRON
     Indication: PROPHYLAXIS
     Dosage: UNK
     Route: 041
     Dates: start: 20140519, end: 20141208
  7. DECADRON                           /00016002/ [Concomitant]
     Active Substance: DEXAMETHASONE
     Indication: PROPHYLAXIS
     Dosage: UNK
     Route: 041
     Dates: start: 20140519, end: 20141208
  8. HIRUDOID                           /00723701/ [Concomitant]
     Indication: PROPHYLAXIS
     Dosage: UNK
     Route: 062
     Dates: start: 20140519, end: 20141221
  9. PROEMEND [Concomitant]
     Active Substance: FOSAPREPITANT
     Indication: PROPHYLAXIS
     Dosage: UNK
     Route: 041
     Dates: start: 20140519, end: 20141208
  10. DECADRON [Concomitant]
     Active Substance: DEXAMETHASONE
     Indication: PROPHYLAXIS
     Dosage: UNK
     Route: 048
     Dates: start: 20140519, end: 20141210

REACTIONS (1)
  - Colon cancer [Recovered/Resolved]

NARRATIVE: CASE EVENT DATE: 20140325
